FAERS Safety Report 5317779-7 (Version None)
Quarter: 2007Q2

REPORT INFORMATION
  Report Type: 
  Country: None (occurrence: None)
  Receive Date: 20070502
  Receipt Date: 20070502
  Transmission Date: 20071010
  Serious: No
  Sender: FDA-Public Use
  Company Number: None

PATIENT
  Sex: Female

DRUGS (24)
  1. ASPIRIN [Suspect]
  2. ATENOLOL [Concomitant]
  3. LASIX [Concomitant]
  4. HYDRALAZINE HCL [Concomitant]
  5. LISINOPRIL [Concomitant]
  6. POTASSIUM CHLORIDE [Concomitant]
  7. NORVASC [Concomitant]
  8. GLIPIZIDE [Concomitant]
  9. LIPITOR [Concomitant]
  10. ZANTAC [Concomitant]
  11. CALCIUM WITH VITAMIN D [Concomitant]
  12. DIGOXIN [Concomitant]
  13. ROSUVASTATIN CALCIUM [Concomitant]
  14. POTASSIUM CHLORIDE [Concomitant]
  15. FAMOTIDINE [Concomitant]
  16. DILTIAZEM CD [Concomitant]
  17. CEFTRIAXONE [Concomitant]
  18. AZITHROMYCIN [Concomitant]
  19. ASPIRIN [Concomitant]
  20. OXYCODONE HCL [Concomitant]
  21. IPRATROPIUM NEB [Concomitant]
  22. INSULIN LISPRO [Concomitant]
  23. ACETAMINOPHEN [Concomitant]
  24. WARFARIN SODIUM [Suspect]
     Dates: start: 20061019, end: 20061022

REACTIONS (4)
  - CEREBROVASCULAR ACCIDENT [None]
  - HAEMATOCRIT DECREASED [None]
  - HAEMOGLOBIN DECREASED [None]
  - RETROPERITONEAL HAEMORRHAGE [None]
